FAERS Safety Report 4703811-8 (Version None)
Quarter: 2005Q2

REPORT INFORMATION
  Report Type: 
  Country: None (occurrence: None)
  Receive Date: 20050629
  Receipt Date: 20050629
  Transmission Date: 20051028
  Serious: Yes (Hospitalization)
  Sender: FDA-Public Use
  Company Number: None

PATIENT
  Sex: Female

DRUGS (3)
  1. CELECOXIB    200 MG [Suspect]
     Indication: MENISCUS LESION
     Dosage: 200 MG   QD   ORAL
     Route: 048
     Dates: start: 20050504, end: 20050518
  2. WARFARIN [Concomitant]
  3. ALPRAZOLAM [Concomitant]

REACTIONS (9)
  - ACUTE FEBRILE NEUTROPHILIC DERMATOSIS [None]
  - CHILLS [None]
  - CONJUNCTIVITIS [None]
  - HYPOTENSION [None]
  - RASH [None]
  - RASH ERYTHEMATOUS [None]
  - RASH PRURITIC [None]
  - SWELLING FACE [None]
  - TREMOR [None]
